FAERS Safety Report 5837913-X (Version None)
Quarter: 2008Q3

REPORT INFORMATION
  Report Type: 
  Country: None (occurrence: None)
  Receive Date: 20080808
  Receipt Date: 20080805
  Transmission Date: 20090109
  Serious: Yes (Hospitalization, Other)
  Sender: FDA-Public Use
  Company Number: GB-BRISTOL-MYERS SQUIBB COMPANY-14269559

PATIENT
  Age: 80 Year
  Sex: Female

DRUGS (6)
  1. PRAVASTATIN SODIUM [Interacting]
     Indication: HYPERCHOLESTEROLAEMIA
  2. ATENOLOL [Suspect]
     Indication: HYPERTENSION
  3. AMITRIPTYLINE HCL [Interacting]
     Indication: DEPRESSION
  4. ASPIRIN [Suspect]
  5. LEVOTHYROXINE SODIUM [Suspect]
     Indication: HYPOTHYROIDISM
  6. ARTHROTEC [Suspect]
     Indication: ARTHRITIS

REACTIONS (8)
  - ABDOMINAL DISCOMFORT [None]
  - ANAEMIA [None]
  - ANOREXIA [None]
  - COLITIS [None]
  - DIARRHOEA [None]
  - DRUG INTERACTION [None]
  - LARGE INTESTINAL ULCER [None]
  - WEIGHT DECREASED [None]
